FAERS Safety Report 7276919-3 (Version None)
Quarter: 2011Q1

REPORT INFORMATION
  Report Type: 
  Country: None (occurrence: None)
  Receive Date: 20110207
  Receipt Date: 20101228
  Transmission Date: 20110831
  Serious: No
  Sender: FDA-Public Use
  Company Number: US-BIOGENIDEC-2011BI002206

PATIENT
  Age: 22 Year
  Sex: Female

DRUGS (5)
  1. TYSABRI [Suspect]
     Indication: MULTIPLE SCLEROSIS
     Route: 042
  2. ALPRAZOLAM [Concomitant]
     Indication: PREMEDICATION
  3. BENZODIAZEPINE (NOS) [Concomitant]
     Indication: ANXIETY
  4. PREDNISONE [Concomitant]
     Indication: PREMEDICATION
  5. DIPHENHYDRAMINE [Concomitant]
     Indication: PREMEDICATION

REACTIONS (2)
  - HYPERSENSITIVITY [None]
  - ANXIETY [None]
